FAERS Safety Report 20198259 (Version 1)
Quarter: 2021Q4

REPORT INFORMATION
  Report Type: Spontaneous
  Country: US (occurrence: None)
  Receive Date: 20211216
  Receipt Date: 20211216
  Transmission Date: 20220303
  Serious: No
  Sender: FDA-Public Use
  Company Number: None

PATIENT
  Age: 58 Year
  Sex: Female
  Weight: 75 kg

DRUGS (1)
  1. GLATIRAMER ACETATE [Suspect]
     Active Substance: GLATIRAMER ACETATE
     Indication: Multiple sclerosis
     Dosage: FREQUENCY : 3 TIMES A WEEK;?
     Route: 058
     Dates: start: 20210915, end: 20211022

REACTIONS (8)
  - Product substitution issue [None]
  - Injection site erythema [None]
  - Injection site pain [None]
  - Condition aggravated [None]
  - Asthenia [None]
  - Tinnitus [None]
  - Dizziness [None]
  - Dizziness [None]

NARRATIVE: CASE EVENT DATE: 20211124
